FAERS Safety Report 22894359 (Version 2)
Quarter: 2023Q4

REPORT INFORMATION
  Report Type: Other
  Country: US (occurrence: None)
  Receive Date: 20230901
  Receipt Date: 20231002
  Transmission Date: 20240110
  Serious: Yes (Death)
  Sender: FDA-Public Use
  Company Number: US-ROCHE-3414751

PATIENT
  Age: 73 Year
  Sex: Female

DRUGS (2)
  1. GAVRETO [Suspect]
     Active Substance: PRALSETINIB
     Indication: Lung neoplasm malignant
     Dosage: TAKE 4 CAPSULE(S) BY MOUTH (400MG) EVERY MORNING BEFORE BREAKFAST
     Route: 048
  2. GAVRETO [Suspect]
     Active Substance: PRALSETINIB
     Indication: Metastases to central nervous system

REACTIONS (1)
  - Death [Fatal]

NARRATIVE: CASE EVENT DATE: 20230826
